FAERS Safety Report 10589013 (Version 3)
Quarter: 2015Q3

REPORT INFORMATION
  Report Type: Spontaneous
  Country: US (occurrence: US)
  Receive Date: 20141118
  Receipt Date: 20150918
  Transmission Date: 20151125
  Serious: Yes (Death)
  Sender: FDA-Public Use
  Company Number: US-ROCHE-1492286

PATIENT
  Age: 59 Year
  Sex: Male
  Weight: 82.63 kg

DRUGS (5)
  1. ZETONNA [Concomitant]
     Active Substance: CICLESONIDE
     Indication: RHINITIS ALLERGIC
     Route: 003
  2. SINGULAIR [Concomitant]
     Active Substance: MONTELUKAST SODIUM
     Indication: ASTHMA
     Route: 048
     Dates: start: 20130610
  3. DULERA [Concomitant]
     Active Substance: FORMOTEROL FUMARATE DIHYDRATE\MOMETASONE FUROATE
     Indication: ASTHMA
     Dosage: 2 PUFF
     Route: 065
     Dates: start: 20130306
  4. SPIRIVA [Concomitant]
     Active Substance: TIOTROPIUM BROMIDE MONOHYDRATE
     Indication: ASTHMA
     Route: 065
     Dates: start: 20140113
  5. XOLAIR [Suspect]
     Active Substance: OMALIZUMAB
     Indication: ASTHMA
     Route: 058
     Dates: start: 20140714, end: 20140814

REACTIONS (5)
  - Cardiac failure congestive [Fatal]
  - Acute myocardial infarction [Fatal]
  - Hypotension [Fatal]
  - Chronic kidney disease [Fatal]
  - Death [Fatal]

NARRATIVE: CASE EVENT DATE: 20141005
